FAERS Safety Report 17301525 (Version 1)
Quarter: 2020Q1

REPORT INFORMATION
  Report Type: Spontaneous
  Country: RU (occurrence: RU)
  Receive Date: 20200122
  Receipt Date: 20200122
  Transmission Date: 20200409
  Serious: Yes (Hospitalization)
  Sender: FDA-Public Use
  Company Number: RU-ASTRAZENECA-2020SE09533

PATIENT
  Sex: Male

DRUGS (4)
  1. BUDESONIDE/FORMOTEROL [Suspect]
     Active Substance: BUDESONIDE\FORMOTEROL
     Indication: CHRONIC OBSTRUCTIVE PULMONARY DISEASE
     Route: 055
  2. RESPIMAT [Concomitant]
     Dosage: AS REQUIRED
     Route: 065
  3. LOSARTAN. [Concomitant]
     Active Substance: LOSARTAN
     Route: 065
  4. FENOTEROL/IPRATROPIUM [Concomitant]
     Active Substance: FENOTEROL\IPRATROPIUM
     Route: 065

REACTIONS (1)
  - Chronic obstructive pulmonary disease [Unknown]
